FAERS Safety Report 11048131 (Version 1)
Quarter: 2015Q2

REPORT INFORMATION
  Report Type: Spontaneous
  Country: FR (occurrence: FR)
  Receive Date: 20150420
  Receipt Date: 20150420
  Transmission Date: 20150821
  Serious: Yes (Hospitalization)
  Sender: FDA-Public Use
  Company Number: FR-SA-2015SA045027

PATIENT
  Age: 76 Year
  Sex: Female

DRUGS (3)
  1. SOLUPRED [Concomitant]
     Active Substance: PREDNISOLONE
     Indication: PREMEDICATION
     Dates: start: 20150102
  2. CLARITYNE [Concomitant]
     Active Substance: LORATADINE
     Indication: PREMEDICATION
     Dates: start: 20150102
  3. THYROGEN [Suspect]
     Active Substance: THYROTROPIN ALFA
     Indication: THYROID CANCER
     Route: 042
     Dates: start: 20150103, end: 20150103

REACTIONS (4)
  - Dyspnoea [Recovered/Resolved]
  - Localised oedema [Recovered/Resolved]
  - Cough [Recovered/Resolved]
  - Incorrect route of drug administration [Unknown]

NARRATIVE: CASE EVENT DATE: 20150103
